FAERS Safety Report 18100488 (Version 1)
Quarter: 2020Q3

REPORT INFORMATION
  Report Type: Other
  Country: NL (occurrence: NL)
  Receive Date: 20200731
  Receipt Date: 20200731
  Transmission Date: 20201103
  Serious: No
  Sender: FDA-Public Use
  Company Number: NL-TOLMAR, INC.-19NL000298

PATIENT
  Age: 58 Year
  Sex: Male

DRUGS (1)
  1. ELIGARD [Suspect]
     Active Substance: LEUPROLIDE ACETATE
     Indication: PROSTATE CANCER
     Dosage: 22.5 MILLIGRAM, EVERY 3 MONTHS
     Route: 058
     Dates: start: 20190613

REACTIONS (6)
  - Asthenia [Unknown]
  - Memory impairment [Unknown]
  - Hot flush [Recovered/Resolved]
  - Arthralgia [Unknown]
  - Poor quality sleep [Unknown]
  - Abulia [Unknown]

NARRATIVE: CASE EVENT DATE: 201906
